FAERS Safety Report 14880056 (Version 1)
Quarter: 2018Q2

REPORT INFORMATION
  Report Type: Spontaneous
  Country: NL (occurrence: NL)
  Receive Date: 20180511
  Receipt Date: 20180511
  Transmission Date: 20180711
  Serious: Yes (Hospitalization)
  Sender: FDA-Public Use
  Company Number: NL-JNJFOC-20180505551

PATIENT
  Age: 63 Year
  Sex: Male
  Weight: 76 kg

DRUGS (5)
  1. NANOGAM [Concomitant]
     Active Substance: HUMAN IMMUNOGLOBULIN G
     Route: 065
  2. FLUTICASON [Concomitant]
     Active Substance: FLUTICASONE
     Route: 065
  3. VALACICLOVIR [Concomitant]
     Active Substance: VALACYCLOVIR HYDROCHLORIDE
     Route: 065
  4. IMBRUVICA [Suspect]
     Active Substance: IBRUTINIB
     Indication: CHRONIC LYMPHOCYTIC LEUKAEMIA
     Dosage: START PERIOD: 3.5 YEARS
     Route: 048
     Dates: start: 20150515
  5. OFLOXACINE [Concomitant]
     Active Substance: OFLOXACIN
     Route: 065

REACTIONS (5)
  - Fatigue [Unknown]
  - Weight decreased [Unknown]
  - Tachycardia [Unknown]
  - Dyspnoea [Unknown]
  - Hyperthyroidism [Unknown]

NARRATIVE: CASE EVENT DATE: 20180301
